FAERS Safety Report 17076412 (Version 1)
Quarter: 2019Q4

REPORT INFORMATION
  Report Type: Spontaneous
  Country: JP (occurrence: JP)
  Receive Date: 20191126
  Receipt Date: 20191126
  Transmission Date: 20200122
  Serious: Yes (Death, Other)
  Sender: FDA-Public Use
  Company Number: JP-BRISTOL-MYERS SQUIBB COMPANY-BMS-2019-112952

PATIENT
  Age: 65 Year
  Sex: Male
  Weight: 46.6 kg

DRUGS (1)
  1. OPDIVO [Suspect]
     Active Substance: NIVOLUMAB
     Indication: GASTRIC CANCER
     Dosage: 240 MILLIGRAM
     Route: 041
     Dates: start: 20190125, end: 20190125

REACTIONS (2)
  - Thrombophlebitis migrans [Not Recovered/Not Resolved]
  - Embolism [Fatal]

NARRATIVE: CASE EVENT DATE: 20190205
